FAERS Safety Report 9818230 (Version 1)
Quarter: 2014Q1

REPORT INFORMATION
  Report Type: Spontaneous
  Country: ES (occurrence: ES)
  Receive Date: 20140115
  Receipt Date: 20140115
  Transmission Date: 20141002
  Serious: Yes (Disabling)
  Sender: FDA-Public Use
  Company Number: ES-SA-2014SA002556

PATIENT
  Age: 65 Year
  Sex: Female

DRUGS (9)
  1. MULTAQ [Suspect]
     Indication: PRODUCT USED FOR UNKNOWN INDICATION
     Dosage: 1-0-1
     Route: 048
     Dates: start: 20131101
  2. SIMVASTATIN [Interacting]
     Indication: HYPERCHOLESTEROLAEMIA
     Route: 048
     Dates: start: 20130701, end: 20131201
  3. SINTROM [Interacting]
     Indication: PRODUCT USED FOR UNKNOWN INDICATION
     Dosage: SEGUN INR
     Route: 065
  4. ACETYLSALICYLIC ACID [Concomitant]
     Indication: PRODUCT USED FOR UNKNOWN INDICATION
     Dosage: 0-1-0
     Route: 065
  5. BISOPROLOL [Concomitant]
     Indication: HYPERTENSION
     Dosage: 1-0-0
     Route: 065
  6. GLIMEPIRIDE [Concomitant]
     Indication: TYPE 2 DIABETES MELLITUS
     Dosage: 1-0-0
     Route: 065
  7. IRBESARTAN [Concomitant]
     Indication: HYPERTENSION
     Dosage: 1-0-0
     Route: 065
  8. OMEPRAZOLE [Concomitant]
     Indication: PRODUCT USED FOR UNKNOWN INDICATION
     Route: 065
  9. METFORMIN HYDROCHLORIDE/VILDAGLIPTIN [Concomitant]
     Indication: TYPE 2 DIABETES MELLITUS
     Dosage: 1000/50 MG 2 VECES AL DIA (1-0-1)
     Route: 065

REACTIONS (6)
  - Myalgia [Recovered/Resolved]
  - Arthralgia [Recovered/Resolved]
  - Muscle spasms [Recovered/Resolved]
  - Fatigue [Recovered/Resolved]
  - International normalised ratio increased [Unknown]
  - Drug interaction [Recovered/Resolved]
